FAERS Safety Report 17878229 (Version 1)
Quarter: 2020Q2

REPORT INFORMATION
  Report Type: Spontaneous
  Country: US (occurrence: US)
  Receive Date: 20200609
  Receipt Date: 20200609
  Transmission Date: 20200714
  Serious: Yes (Life-Threatening, Hospitalization, Other)
  Sender: FDA-Public Use
  Company Number: US-GLENMARK PHARMACEUTICALS-2020GMK048059

PATIENT
  Age: 32 Year
  Sex: Female

DRUGS (2)
  1. ETHINYL ESTRADIOL/NORETHINDRONE ACETATE [Suspect]
     Active Substance: ETHINYL ESTRADIOL\NORETHINDRONE ACETATE
     Indication: POLYCYSTIC OVARIES
     Dosage: UNK
     Route: 048
  2. METHYLPREDNISOLONE. [Suspect]
     Active Substance: METHYLPREDNISOLONE
     Indication: IDIOPATHIC INTRACRANIAL HYPERTENSION
     Dosage: 250 MILLIGRAM, EVERY 6 HOURS
     Route: 042

REACTIONS (10)
  - Optic atrophy [Not Recovered/Not Resolved]
  - Diplopia [Recovered/Resolved]
  - Brain oedema [Recovering/Resolving]
  - Weight decreased [Unknown]
  - Cerebrovascular accident [Recovering/Resolving]
  - Subarachnoid haemorrhage [Recovering/Resolving]
  - Papilloedema [Recovered/Resolved]
  - Cerebral venous sinus thrombosis [Recovering/Resolving]
  - Blindness [Recovering/Resolving]
  - Idiopathic intracranial hypertension [Recovering/Resolving]
